FAERS Safety Report 24777789 (Version 1)
Quarter: 2024Q4

REPORT INFORMATION
  Report Type: Spontaneous
  Country: PT (occurrence: PT)
  Receive Date: 20241226
  Receipt Date: 20241226
  Transmission Date: 20250115
  Serious: Yes (Hospitalization, Other)
  Sender: NOVARTIS
  Company Number: PT-002147023-NVSC2024PT242045

PATIENT
  Age: 34 Year
  Sex: Female

DRUGS (5)
  1. CARBAMAZEPINE [Suspect]
     Active Substance: CARBAMAZEPINE
     Indication: Major depression
     Dosage: UNK
     Route: 065
  2. AMITRIPTYLINE [Concomitant]
     Active Substance: AMITRIPTYLINE
     Indication: Major depression
     Dosage: UNK
     Route: 065
  3. FLUOXETINE [Concomitant]
     Active Substance: FLUOXETINE HYDROCHLORIDE
     Indication: Major depression
     Dosage: UNK
     Route: 065
  4. MEXAZOLAM [Concomitant]
     Active Substance: MEXAZOLAM
     Indication: Major depression
     Dosage: UNK
     Route: 065
  5. Immunoglobulin [Concomitant]
     Indication: Product used for unknown indication
     Dosage: 1 G/KG A DAY FOR 3 CONSECUTIVE DAYS
     Route: 042

REACTIONS (19)
  - Toxic epidermal necrolysis [Recovered/Resolved with Sequelae]
  - Visual acuity reduced [Not Recovered/Not Resolved]
  - Dysgeusia [Not Recovered/Not Resolved]
  - Dysphagia [Not Recovered/Not Resolved]
  - Menstrual disorder [Not Recovered/Not Resolved]
  - Vaginal infection [Not Recovered/Not Resolved]
  - Iron binding capacity total decreased [Not Recovered/Not Resolved]
  - Rash maculo-papular [Not Recovered/Not Resolved]
  - Blister [Not Recovered/Not Resolved]
  - Odynophagia [Not Recovered/Not Resolved]
  - Pyrexia [Recovered/Resolved with Sequelae]
  - Tonsillar exudate [Recovered/Resolved with Sequelae]
  - Mouth ulceration [Recovered/Resolved with Sequelae]
  - Vulval ulceration [Recovered/Resolved with Sequelae]
  - Eye disorder [Recovered/Resolved with Sequelae]
  - Nikolsky^s sign positive [Recovered/Resolved with Sequelae]
  - Skin lesion [Recovered/Resolved with Sequelae]
  - Gastric mucosal lesion [Recovered/Resolved with Sequelae]
  - Genital lesion [Recovered/Resolved with Sequelae]
